FAERS Safety Report 18072080 (Version 1)
Quarter: 2020Q3

REPORT INFORMATION
  Report Type: Spontaneous
  Country: US (occurrence: US)
  Receive Date: 20200725
  Receipt Date: 20200725
  Transmission Date: 20201103
  Serious: No
  Sender: FDA-Public Use
  Company Number: None

PATIENT
  Age: 41 Year
  Sex: Female

DRUGS (4)
  1. BUPROPION HCL EXTENDED RELEASE TABLETS [Suspect]
     Active Substance: BUPROPION HYDROCHLORIDE
     Indication: PRODUCT USED FOR UNKNOWN INDICATION
     Route: 048
     Dates: start: 20200127
  2. LOSARTAN 100MG DAILY [Concomitant]
     Active Substance: LOSARTAN
  3. HYDROCHLOROTHIAZIDE 25 MG DAILY [Concomitant]
  4. ALBUTEROL 90MCG / PUFF AS NEEDED [Concomitant]

REACTIONS (3)
  - Product quality issue [None]
  - Product odour abnormal [None]
  - Abdominal discomfort [None]

NARRATIVE: CASE EVENT DATE: 20200725
